FAERS Safety Report 8923227 (Version 1)
Quarter: 2012Q4

REPORT INFORMATION
  Report Type: 
  Country: US (occurrence: US)
  Receive Date: 20121123
  Receipt Date: 20121123
  Transmission Date: 20130627
  Serious: No
  Sender: FDA-Public Use
  Company Number: US-PFIZER INC-2012293875

PATIENT
  Age: 59 Year
  Sex: Male
  Weight: 88.44 kg

DRUGS (4)
  1. CHANTIX [Suspect]
     Indication: SMOKING CESSATION THERAPY
     Dosage: 0.5 mg, daily
     Dates: start: 20121116, end: 201211
  2. CHANTIX [Suspect]
     Dosage: 0.5 mg, 2x/day
     Dates: start: 201211, end: 20121121
  3. CRESTOR [Concomitant]
     Indication: HIGH CHOLESTEROL
     Dosage: 5 mg, daily
  4. METFORMIN [Concomitant]
     Indication: DIABETES
     Dosage: 500 mg, 2x/day

REACTIONS (1)
  - Malaise [Recovered/Resolved]
